FAERS Safety Report 5400019-8 (Version None)
Quarter: 2007Q3

REPORT INFORMATION
  Report Type: 
  Country: None (occurrence: None)
  Receive Date: 20070726
  Receipt Date: 20070726
  Transmission Date: 20080115
  Serious: Yes (Hospitalization)
  Sender: FDA-Public Use
  Company Number: None

PATIENT
  Age: 77 Year
  Sex: Male
  Weight: 60.2 kg

DRUGS (9)
  1. CAPECITABINE 1000MG/M2 ROCHE LABORATORIES [Suspect]
     Indication: ADENOCARCINOMA PANCREAS
     Dosage: 1800MG TWICE DAILY PO
     Route: 048
     Dates: start: 20070517, end: 20070620
  2. METOPROLOL SUCCINATE EXTENDED RELEASE [Concomitant]
  3. LOVENOX [Concomitant]
  4. REMERON [Concomitant]
  5. DYAZIDE [Concomitant]
  6. MARINOL [Concomitant]
  7. PANCREATIC ENZYMES [Concomitant]
  8. IMODIUM [Concomitant]
  9. LOMOTIL [Concomitant]

REACTIONS (7)
  - ASTHENIA [None]
  - DEHYDRATION [None]
  - DIARRHOEA [None]
  - DYSPHAGIA [None]
  - MALNUTRITION [None]
  - NAUSEA [None]
  - VOMITING [None]
